FAERS Safety Report 25234174 (Version 1)
Quarter: 2025Q2

REPORT INFORMATION
  Report Type: Spontaneous
  Country: IN (occurrence: IN)
  Receive Date: 20250424
  Receipt Date: 20250424
  Transmission Date: 20250716
  Serious: Yes (Disabling)
  Sender: MACLEODS
  Company Number: IN-MLMSERVICE-20250407-PI473042-00202-1

PATIENT

DRUGS (2)
  1. LINEZOLID [Suspect]
     Active Substance: LINEZOLID
     Indication: Tuberculosis
     Route: 065
  2. LINEZOLID [Suspect]
     Active Substance: LINEZOLID
     Indication: Tuberculoma of central nervous system

REACTIONS (1)
  - Peripheral sensorimotor neuropathy [Recovering/Resolving]
